FAERS Safety Report 4545022-5 (Version None)
Quarter: 2005Q1

REPORT INFORMATION
  Report Type: 
  Country: None (occurrence: None)
  Receive Date: 20050105
  Receipt Date: 20040916
  Transmission Date: 20050727
  Serious: Yes (Other)
  Sender: FDA-Public Use
  Company Number: US-GLAXOSMITHKLINE-A0526103A

PATIENT
  Age: 74 Year
  Sex: Female

DRUGS (4)
  1. PHAZYME ULTRA STRENGTH SOFTGELS [Suspect]
     Indication: FLATULENCE
     Dosage: 1CAP PER DAY
     Route: 048
     Dates: start: 20040601
  2. PROTONIX [Concomitant]
     Indication: GASTROOESOPHAGEAL REFLUX DISEASE
     Dosage: 40MG PER DAY
     Route: 048
     Dates: start: 20040101, end: 20040701
  3. SYNTHROID [Concomitant]
     Indication: HYPOTHYROIDISM
     Route: 048
  4. METOPROLOL [Concomitant]
     Indication: HYPERTENSION
     Route: 048

REACTIONS (2)
  - LIVER FUNCTION TEST ABNORMAL [None]
  - NAUSEA [None]
